FAERS Safety Report 14139281 (Version 3)
Quarter: 2017Q4

REPORT INFORMATION
  Report Type: Report from Study
  Country: None (occurrence: US)
  Receive Date: 20171028
  Receipt Date: 20171114
  Transmission Date: 20180321
  Serious: Yes (Other)
  Sender: FDA-Public Use
  Company Number: US-ABBVIE-17K-163-2139465-00

PATIENT
  Age: 52 Year
  Sex: Female

DRUGS (2)
  1. HUMIRA [Suspect]
     Active Substance: ADALIMUMAB
     Indication: PSORIATIC ARTHROPATHY
     Route: 058
     Dates: start: 2017
  2. HUMIRA [Suspect]
     Active Substance: ADALIMUMAB
     Indication: RHEUMATOID ARTHRITIS
     Route: 058
     Dates: start: 201402, end: 201705

REACTIONS (12)
  - Plantar fasciitis [Unknown]
  - Nasopharyngitis [Unknown]
  - Prescription drug used without a prescription [Unknown]
  - Psoriatic arthropathy [Unknown]
  - Rash papular [Unknown]
  - Systemic lupus erythematosus [Unknown]
  - Ligament sprain [Unknown]
  - Respiratory tract congestion [Unknown]
  - Psoriasis [Recovering/Resolving]
  - Nodule [Not Recovered/Not Resolved]
  - Fall [Unknown]
  - Hypoacusis [Unknown]

NARRATIVE: CASE EVENT DATE: 2015
